FAERS Safety Report 10136390 (Version 3)
Quarter: 2014Q3

REPORT INFORMATION
  Report Type: Spontaneous
  Country: US (occurrence: None)
  Receive Date: 20140425
  Receipt Date: 20140714
  Transmission Date: 20150326
  Serious: Yes (Hospitalization)
  Sender: FDA-Public Use
  Company Number: UTC-047426

PATIENT
  Age: 59 Year
  Sex: Female
  Weight: 56.2 kg

DRUGS (4)
  1. COUMADIN [Concomitant]
     Active Substance: WARFARIN SODIUM
  2. OXYGEN (OXYGEN) [Concomitant]
     Active Substance: OXYGEN
  3. LETAIRIS [Concomitant]
     Active Substance: AMBRISENTAN
  4. TYVASO [Suspect]
     Active Substance: TREPROSTINIL
     Indication: COR PULMONALE CHRONIC
     Dosage: 240MCG (60 MCG, 4 IN 1 D)
     Dates: start: 20121001

REACTIONS (4)
  - Road traffic accident [None]
  - Thoracic vertebral fracture [None]
  - Cervical vertebral fracture [None]
  - Loss of consciousness [None]

NARRATIVE: CASE EVENT DATE: 20140326
